FAERS Safety Report 6645918-4 (Version None)
Quarter: 2010Q1

REPORT INFORMATION
  Report Type: 
  Country: None (occurrence: None)
  Receive Date: 20100323
  Receipt Date: 20100312
  Transmission Date: 20100710
  Serious: Yes (Hospitalization)
  Sender: FDA-Public Use
  Company Number: PHHO2010JP01943

PATIENT
  Sex: Female
  Weight: 15 kg

DRUGS (2)
  1. ACZ885 ACZ+ [Suspect]
     Indication: CRYOPYRIN ASSOCIATED PERIODIC SYNDROME
     Dosage: UNK
     Route: 058
     Dates: start: 20091215
  2. METHOTREXATE [Suspect]
     Dosage: 2MG WEEKLY
     Route: 048
     Dates: end: 20100129

REACTIONS (15)
  - C-REACTIVE PROTEIN INCREASED [None]
  - COUGH [None]
  - ERYTHEMA [None]
  - HAEMOGLOBIN DECREASED [None]
  - INFLAMMATION [None]
  - LUNG INFILTRATION [None]
  - LYMPHADENOPATHY [None]
  - LYMPHOCYTE MORPHOLOGY ABNORMAL [None]
  - PANCYTOPENIA [None]
  - PYREXIA [None]
  - RHINORRHOEA [None]
  - THROMBOCYTOPENIA [None]
  - UPPER RESPIRATORY TRACT INFLAMMATION [None]
  - URTICARIA [None]
  - VIRAL INFECTION [None]
